FAERS Safety Report 5145755-6 (Version None)
Quarter: 2006Q4

REPORT INFORMATION
  Report Type: 
  Country: None (occurrence: None)
  Receive Date: 20060915
  Receipt Date: 20060629
  Transmission Date: 20070319
  Serious: No
  Sender: FDA-Public Use
  Company Number: 2006RL000247

PATIENT
  Sex: Male

DRUGS (1)
  1. OMACOR [Suspect]
     Indication: DRUG USE FOR UNKNOWN INDICATION
     Dosage: 1 GM;QID;PO
     Route: 048
     Dates: start: 20060101

REACTIONS (6)
  - BONE PAIN [None]
  - CHAPPED LIPS [None]
  - HEADACHE [None]
  - HYPERVITAMINOSIS [None]
  - LIP DRY [None]
  - RASH [None]
